FAERS Safety Report 10425107 (Version 1)
Quarter: 2014Q3

REPORT INFORMATION
  Report Type: Spontaneous
  Country: FR (occurrence: FR)
  Receive Date: 20140902
  Receipt Date: 20140902
  Transmission Date: 20150326
  Serious: Yes (Death)
  Sender: FDA-Public Use
  Company Number: FR-VIIV HEALTHCARE LIMITED-B1025404A

PATIENT
  Age: 55 Year
  Sex: Male

DRUGS (8)
  1. TRUVADA [Suspect]
     Active Substance: EMTRICITABINE\TENOFOVIR DISOPROXIL FUMARATE
     Indication: HIV INFECTION
     Dosage: 1TAB PER DAY
     Route: 048
     Dates: start: 20140331, end: 20140504
  2. NORVIR [Concomitant]
     Active Substance: RITONAVIR
     Indication: HIV INFECTION
     Route: 065
     Dates: end: 201403
  3. PREZISTA [Concomitant]
     Active Substance: DARUNAVIR ETHANOLATE
     Indication: HIV INFECTION
     Route: 065
     Dates: end: 201403
  4. ISENTRESS [Concomitant]
     Active Substance: RALTEGRAVIR POTASSIUM
     Indication: HIV INFECTION
     Route: 065
     Dates: end: 201403
  5. ANTI-VIRAL MEDICATION [Suspect]
     Active Substance: UNSPECIFIED INGREDIENT
     Indication: HEPATITIS C
     Dosage: 1UNIT PER DAY
     Route: 048
     Dates: start: 20140424, end: 20140504
  6. INTELENCE [Concomitant]
     Active Substance: ETRAVIRINE
     Indication: HIV INFECTION
     Route: 065
     Dates: end: 201403
  7. TIVICAY [Suspect]
     Active Substance: DOLUTEGRAVIR SODIUM
     Indication: HIV INFECTION
     Dosage: 50MG PER DAY
     Route: 048
     Dates: start: 20140331, end: 20140504
  8. SOVALDI [Suspect]
     Active Substance: SOFOSBUVIR
     Indication: HEPATITIS C
     Dosage: 400MG PER DAY
     Route: 048
     Dates: start: 20140424, end: 20140504

REACTIONS (14)
  - Hepatic cirrhosis [Fatal]
  - Anaemia [Unknown]
  - Platelet count decreased [Unknown]
  - Splenomegaly [Unknown]
  - Varices oesophageal [Unknown]
  - Portal hypertension [Unknown]
  - Ascites [Unknown]
  - Pruritus [Unknown]
  - Abdominal pain [Unknown]
  - Gastrointestinal motility disorder [Unknown]
  - Pulmonary arterial hypertension [Unknown]
  - Coagulopathy [Unknown]
  - Ocular icterus [Unknown]
  - Liver disorder [Unknown]

NARRATIVE: CASE EVENT DATE: 2014
